FAERS Safety Report 10564272 (Version 3)
Quarter: 2014Q4

REPORT INFORMATION
  Report Type: Other
  Country: GB (occurrence: GB)
  Receive Date: 20141104
  Receipt Date: 20141223
  Transmission Date: 20150529
  Serious: Yes (Death, Hospitalization)
  Sender: FDA-Public Use
  Company Number: GB-MYLANLABS-2014M1008528

PATIENT

DRUGS (5)
  1. CLOPIDOGREL [Suspect]
     Active Substance: CLOPIDOGREL BISULFATE
     Dosage: UNK
     Dates: start: 20140825, end: 20140828
  2. CLOPIDOGREL [Suspect]
     Active Substance: CLOPIDOGREL BISULFATE
     Dosage: UNK
     Dates: end: 20140823
  3. XARELTO [Suspect]
     Active Substance: RIVAROXABAN
     Indication: EMBOLISM VENOUS
     Dosage: 15 MG, BID
     Dates: end: 20140823
  4. XARELTO [Suspect]
     Active Substance: RIVAROXABAN
     Indication: DEEP VEIN THROMBOSIS
     Dosage: 15 MG, BID
     Dates: start: 20140825, end: 20140828
  5. HEPARIN [Suspect]
     Active Substance: HEPARIN SODIUM
     Indication: DEEP VEIN THROMBOSIS
     Dosage: TREATMENT DOSE
     Dates: start: 20140818, end: 20140823

REACTIONS (4)
  - Cardiac arrest [Unknown]
  - Haemorrhage intracranial [Fatal]
  - Endocarditis [Unknown]
  - Circulatory collapse [Fatal]

NARRATIVE: CASE EVENT DATE: 201408
